FAERS Safety Report 4728455-3 (Version None)
Quarter: 2005Q3

REPORT INFORMATION
  Report Type: 
  Country: None (occurrence: None)
  Receive Date: 20050727
  Receipt Date: 20050714
  Transmission Date: 20060218
  Serious: Yes (Disabling, Other)
  Sender: FDA-Public Use
  Company Number: 2005090819

PATIENT
  Age: 90 Year
  Sex: Female

DRUGS (9)
  1. DIFLUCAN [Suspect]
     Indication: CANDIDIASIS
     Dosage: 100 MG (100 MG, 1 IN 1 D), ORAL
     Route: 048
     Dates: start: 20050509, end: 20050522
  2. ALL OTHER THERAPEUTIC PRODUCTS (ALL OTHER THERAPEUTIC PRODUCTS) [Concomitant]
  3. HUMULIN N [Concomitant]
  4. SYNTHROID [Concomitant]
  5. MULTIVITAMIN [Concomitant]
  6. PRILOSEC [Concomitant]
  7. ASPIRIN [Concomitant]
  8. DIOVANE (VALSARTAN) [Concomitant]
  9. BUMEX [Concomitant]

REACTIONS (15)
  - ABNORMAL BEHAVIOUR [None]
  - AGGRESSION [None]
  - AGITATION [None]
  - ANGER [None]
  - CEREBROVASCULAR ACCIDENT [None]
  - CONFUSIONAL STATE [None]
  - COPROLALIA [None]
  - DIET REFUSAL [None]
  - DIFFICULTY IN WALKING [None]
  - DYSARTHRIA [None]
  - PARANOIA [None]
  - SCREAMING [None]
  - SPEECH DISORDER [None]
  - UNEVALUABLE EVENT [None]
  - WEIGHT DECREASED [None]
